FAERS Safety Report 8803497 (Version 1)
Quarter: 2012Q4

REPORT INFORMATION
  Report Type: 
  Country: US (occurrence: US)
  Receive Date: 20120924
  Receipt Date: 20120924
  Transmission Date: 20130627
  Serious: No
  Sender: FDA-Public Use
  Company Number: US-009507513-1209USA007466

PATIENT
  Age: 34 Year
  Sex: Female
  Weight: 102.49 kg

DRUGS (1)
  1. IMPLANON [Suspect]
     Indication: CONTRACEPTION
     Dosage: 3 years
     Route: 059
     Dates: start: 20120613

REACTIONS (5)
  - Dyspepsia [Unknown]
  - Back pain [Unknown]
  - Metrorrhagia [Unknown]
  - Constipation [Unknown]
  - Dizziness [Unknown]
